FAERS Safety Report 8343177-8 (Version None)
Quarter: 2012Q2

REPORT INFORMATION
  Report Type: 
  Country: None (occurrence: None)
  Receive Date: 20120503
  Receipt Date: 20120423
  Transmission Date: 20120825
  Serious: Yes (Other)
  Sender: FDA-Public Use
  Company Number: ADR-2011-10531

PATIENT
  Age: 36 Year
  Sex: Female

DRUGS (1)
  1. BACLOFEN [Suspect]
     Indication: MUSCLE SPASTICITY
     Dosage: MCG, DAILY, INTRATH
     Route: 037

REACTIONS (6)
  - DIFFUSE AXONAL INJURY [None]
  - NAUSEA [None]
  - FLUID RETENTION [None]
  - BRAIN HYPOXIA [None]
  - VOMITING [None]
  - IMPLANT SITE EFFUSION [None]
